FAERS Safety Report 22696626 (Version 3)
Quarter: 2024Q1

REPORT INFORMATION
  Report Type: Report from Study
  Country: US (occurrence: US)
  Receive Date: 20230712
  Receipt Date: 20240129
  Transmission Date: 20240410
  Serious: Yes (Hospitalization, Other)
  Sender: FDA-Public Use
  Company Number: US-UCBSA-2023034680

PATIENT
  Sex: Female

DRUGS (1)
  1. ROTIGOTINE [Suspect]
     Active Substance: ROTIGOTINE
     Indication: Parkinson^s disease
     Dosage: 8 MILLIGRAM, ONCE DAILY (QD)
     Route: 062

REACTIONS (6)
  - Pneumonia [Recovered/Resolved]
  - Dehydration [Recovered/Resolved]
  - Anal fissure [Unknown]
  - Anal fissure excision [Unknown]
  - Product availability issue [Unknown]
  - Therapy interrupted [Unknown]
